FAERS Safety Report 6748852-4 (Version None)
Quarter: 2010Q2

REPORT INFORMATION
  Report Type: 
  Country: None (occurrence: None)
  Receive Date: 20100601
  Receipt Date: 20100526
  Transmission Date: 20101027
  Serious: Yes (Death)
  Sender: FDA-Public Use
  Company Number: PHHY2010VE34196

PATIENT
  Sex: Male

DRUGS (1)
  1. SANDOSTATIN [Suspect]
     Indication: BILIARY FISTULA
     Dosage: 1 MG/5 ML, UNK
     Dates: start: 20091127

REACTIONS (1)
  - SEPTIC SHOCK [None]
